FAERS Safety Report 20206469 (Version 2)
Quarter: 2021Q4

REPORT INFORMATION
  Report Type: Report from Study
  Country: DZ (occurrence: None)
  Receive Date: 20211220
  Receipt Date: 20211230
  Transmission Date: 20220303
  Serious: Yes (Death, Hospitalization, Other)
  Sender: FDA-Public Use
  Company Number: DZ-Merck Healthcare KGaA-9288077

PATIENT
  Age: 42 Year
  Sex: Female

DRUGS (1)
  1. REBIF [Suspect]
     Active Substance: INTERFERON BETA-1A
     Indication: Multiple sclerosis
     Route: 058
     Dates: start: 20120101, end: 2020

REACTIONS (7)
  - Haematemesis [Fatal]
  - Coma [Recovered/Resolved]
  - Gastric cancer [Unknown]
  - Appendicitis [Unknown]
  - Colon operation [Unknown]
  - Metabolic disorder [Unknown]
  - Anaemia [Unknown]

NARRATIVE: CASE EVENT DATE: 20200101
